FAERS Safety Report 21194674 (Version 4)
Quarter: 2022Q4

REPORT INFORMATION
  Report Type: Report from Study
  Country: US (occurrence: US)
  Receive Date: 20220810
  Receipt Date: 20221024
  Transmission Date: 20230113
  Serious: Yes (Hospitalization)
  Sender: FDA-Public Use
  Company Number: US-BIOGEN-2022BI01129290

PATIENT
  Age: 79 Year
  Sex: Female

DRUGS (11)
  1. AMPYRA [Suspect]
     Active Substance: DALFAMPRIDINE
     Indication: Gait disturbance
     Dosage: 10 MILLIGRAM, BID
     Route: 048
  2. TECFIDERA [Suspect]
     Active Substance: DIMETHYL FUMARATE
     Indication: Multiple sclerosis
     Dosage: 240 MILLIGRAM, BID (MAINTENANCE DOSE)
     Route: 048
  3. TECFIDERA [Suspect]
     Active Substance: DIMETHYL FUMARATE
     Dosage: 120 MILLIGRAM, BID (STARTING DOSE)
     Route: 048
     Dates: start: 20150122
  4. AVONEX [Suspect]
     Active Substance: INTERFERON BETA-1A
     Indication: Multiple sclerosis
     Dosage: WEEK 1= /4 DOSE, WEEK 2=1/2 DOSE, WEEK 3= 3/4 DOSE, WEEK 4=
     Route: 030
     Dates: start: 202205
  5. AVONEX [Suspect]
     Active Substance: INTERFERON BETA-1A
     Dosage: WEEK 1= /4 DOSE, WEEK 2=1/2 DOSE, WEEK 3= 3/4 DOSE, WEEK 4=
     Route: 030
     Dates: start: 202205
  6. AVONEX [Suspect]
     Active Substance: INTERFERON BETA-1A
     Dosage: WEEK 1= /4 DOSE, WEEK 2=1/2 DOSE, WEEK 3= 3/4 DOSE, WEEK 4=
     Route: 030
     Dates: start: 202205
  7. AVONEX [Suspect]
     Active Substance: INTERFERON BETA-1A
     Dosage: WEEK 1= /4 DOSE, WEEK 2=1/2 DOSE, WEEK 3= 3/4 DOSE, WEEK 4=
     Route: 030
     Dates: start: 20220506
  8. ASPIRIN [Concomitant]
     Active Substance: ASPIRIN
     Indication: Product used for unknown indication
     Dosage: LOW DOSE
     Route: 065
  9. OXYBUTYNIN CHLORIDE [Concomitant]
     Active Substance: OXYBUTYNIN CHLORIDE
     Indication: Product used for unknown indication
     Dosage: UNKNOWN
     Route: 065
  10. VITAMIN B12 [Concomitant]
     Active Substance: CYANOCOBALAMIN
     Indication: Product used for unknown indication
     Dosage: UNKNOWN
     Route: 065
  11. VITAMIN D3 [Concomitant]
     Active Substance: CHOLECALCIFEROL
     Indication: Product used for unknown indication
     Dosage: UNKNOWN
     Route: 065

REACTIONS (7)
  - Peripheral swelling [Not Recovered/Not Resolved]
  - Condition aggravated [Not Recovered/Not Resolved]
  - Gait disturbance [Not Recovered/Not Resolved]
  - Back pain [Not Recovered/Not Resolved]
  - Asthenia [Recovered/Resolved]
  - Sinusitis [Not Recovered/Not Resolved]
  - Gait disturbance [Not Recovered/Not Resolved]

NARRATIVE: CASE EVENT DATE: 20220401
